FAERS Safety Report 10929418 (Version 2)
Quarter: 2015Q2

REPORT INFORMATION
  Report Type: Spontaneous
  Country: US (occurrence: US)
  Receive Date: 20150319
  Receipt Date: 20150524
  Transmission Date: 20150821
  Serious: No
  Sender: FDA-Public Use
  Company Number: US-JNJFOC-20130411285

PATIENT
  Age: 16 Year
  Sex: Male
  Weight: 81.42 kg

DRUGS (10)
  1. CONCERTA [Suspect]
     Active Substance: METHYLPHENIDATE HYDROCHLORIDE
     Indication: ATTENTION DEFICIT/HYPERACTIVITY DISORDER
     Route: 048
     Dates: start: 20130207, end: 20130305
  2. CONCERTA [Suspect]
     Active Substance: METHYLPHENIDATE HYDROCHLORIDE
     Indication: AFFECTIVE DISORDER
     Route: 048
     Dates: start: 20130305
  3. CONCERTA [Suspect]
     Active Substance: METHYLPHENIDATE HYDROCHLORIDE
     Indication: ATTENTION DEFICIT/HYPERACTIVITY DISORDER
     Route: 048
     Dates: start: 20130305
  4. ABILIFY [Concomitant]
     Active Substance: ARIPIPRAZOLE
     Dosage: IN PM
     Route: 048
     Dates: start: 20130205
  5. CLONIDINE. [Concomitant]
     Active Substance: CLONIDINE
     Indication: AKATHISIA
     Route: 048
     Dates: start: 20130416
  6. MELATONIN [Concomitant]
     Active Substance: MELATONIN
     Indication: SLEEP DISORDER
     Route: 048
     Dates: start: 20130219
  7. CLONIDINE. [Concomitant]
     Active Substance: CLONIDINE
     Indication: AKATHISIA
     Dosage: IN PM
     Route: 048
     Dates: start: 20130219
  8. CONCERTA [Suspect]
     Active Substance: METHYLPHENIDATE HYDROCHLORIDE
     Indication: AFFECTIVE DISORDER
     Route: 048
     Dates: start: 20130207, end: 20130305
  9. DIPHENHYDRAMINE [Concomitant]
     Active Substance: DIPHENHYDRAMINE
     Indication: SLEEP DISORDER
     Route: 048
     Dates: start: 20130205
  10. CLONIDINE. [Concomitant]
     Active Substance: CLONIDINE
     Indication: AKATHISIA
     Route: 048
     Dates: start: 20130402

REACTIONS (1)
  - Drug ineffective [Not Recovered/Not Resolved]

NARRATIVE: CASE EVENT DATE: 20130207
